FAERS Safety Report 11190114 (Version 1)
Quarter: 2015Q2

REPORT INFORMATION
  Report Type: Spontaneous
  Country: US (occurrence: US)
  Receive Date: 20150615
  Receipt Date: 20150615
  Transmission Date: 20150821
  Serious: No
  Sender: FDA-Public Use
  Company Number: US-009507513-1506USA005856

PATIENT
  Sex: Female
  Weight: 72.56 kg

DRUGS (1)
  1. NUVARING [Suspect]
     Active Substance: ETHINYL ESTRADIOL\ETONOGESTREL
     Indication: PRODUCT USED FOR UNKNOWN INDICATION
     Dosage: DOSE/ FREQUENCY: 3 WEEKS IN 1 WEEK OUT (QM), THERAPY ROUTE: VAGINALLY
     Route: 067
     Dates: start: 201204

REACTIONS (1)
  - Menorrhagia [Unknown]
